FAERS Safety Report 5226925-5 (Version None)
Quarter: 2007Q1

REPORT INFORMATION
  Report Type: 
  Country: None (occurrence: None)
  Receive Date: 20070201
  Receipt Date: 20070201
  Transmission Date: 20070707
  Serious: Yes (Death, Life-Threatening, Hospitalization, Disabling, Other)
  Sender: FDA-Public Use
  Company Number: None

PATIENT
  Sex: Female
  Weight: 90.7194 kg

DRUGS (1)
  1. CELEBREX [Suspect]
     Indication: ARTHRALGIA
     Dosage: 200MG 1 OR MORE AS NEEDE PO
     Route: 048
     Dates: start: 20011112, end: 20050115

REACTIONS (9)
  - ASTHENIA [None]
  - CARDIAC FAILURE CONGESTIVE [None]
  - CARDIOVASCULAR DISORDER [None]
  - CEREBROVASCULAR ACCIDENT [None]
  - CORONARY ARTERY OCCLUSION [None]
  - FATIGUE [None]
  - NEOPLASM MALIGNANT [None]
  - RECTAL HAEMORRHAGE [None]
  - TRANSIENT ISCHAEMIC ATTACK [None]
